FAERS Safety Report 15981561 (Version 1)
Quarter: 2019Q1

REPORT INFORMATION
  Report Type: Spontaneous
  Country: US (occurrence: US)
  Receive Date: 20190219
  Receipt Date: 20190219
  Transmission Date: 20190418
  Serious: No
  Sender: FDA-Public Use
  Company Number: US-ELI_LILLY_AND_COMPANY-US201902003915

PATIENT
  Age: 63 Year
  Sex: Female

DRUGS (2)
  1. BASAGLAR [Suspect]
     Active Substance: INSULIN GLARGINE
     Indication: PRODUCT USED FOR UNKNOWN INDICATION
     Dosage: 65 U, UNKNOWN
     Route: 065
  2. BASAGLAR [Suspect]
     Active Substance: INSULIN GLARGINE
     Dosage: 65 U, UNKNOWN
     Route: 065

REACTIONS (10)
  - Tremor [Unknown]
  - Somnolence [Unknown]
  - Dysgeusia [Unknown]
  - Hypoaesthesia [Unknown]
  - Body temperature decreased [Unknown]
  - Lip swelling [Unknown]
  - Swelling face [Unknown]
  - Swollen tongue [Unknown]
  - Paraesthesia [Unknown]
  - Chest discomfort [Unknown]

NARRATIVE: CASE EVENT DATE: 20190207
